FAERS Safety Report 9795466 (Version 1)
Quarter: 2014Q1

REPORT INFORMATION
  Report Type: Spontaneous
  Country: US (occurrence: US)
  Receive Date: 20140103
  Receipt Date: 20140103
  Transmission Date: 20141002
  Serious: Yes (Hospitalization)
  Sender: FDA-Public Use
  Company Number: US-ROCHE-1328562

PATIENT
  Sex: Female

DRUGS (8)
  1. LUCENTIS [Suspect]
     Indication: MACULAR DEGENERATION
     Route: 065
  2. EFFEXOR [Concomitant]
  3. PLAVIX [Concomitant]
  4. JANUMET [Concomitant]
  5. AMLODIPINE [Concomitant]
     Route: 065
  6. MIRTAZAPINE [Concomitant]
     Route: 065
  7. VITAMIN B12 [Concomitant]
     Dosage: ONCE A MONTH
     Route: 065
  8. ASMANEX [Concomitant]
     Route: 065

REACTIONS (1)
  - Respiratory disorder [Unknown]
